FAERS Safety Report 20543013 (Version 2)
Quarter: 2022Q1

REPORT INFORMATION
  Report Type: Spontaneous
  Country: AU (occurrence: AU)
  Receive Date: 20220302
  Receipt Date: 20220308
  Transmission Date: 20220423
  Serious: Yes (Hospitalization, Other)
  Sender: FDA-Public Use
  Company Number: AU-PFIZER INC-202200269156

PATIENT
  Age: 26 Year
  Sex: Male
  Weight: 72 kg

DRUGS (8)
  1. CLOZAPINE [Suspect]
     Active Substance: CLOZAPINE
     Dosage: 12.5 MG
     Dates: start: 20220216, end: 20220216
  2. DIAZEPAM [Suspect]
     Active Substance: DIAZEPAM
     Dosage: 10 MG NOCTE
  3. ZUCLOPENTHIXOL [Suspect]
     Active Substance: ZUCLOPENTHIXOL
     Dosage: 200 MG
     Dates: start: 20220218
  4. BENZTROPINE [Suspect]
     Active Substance: BENZTROPINE
     Dosage: 2 MG MANE
  5. OLANZAPINE [Suspect]
     Active Substance: OLANZAPINE
     Dosage: 20 MG NOCTE
  6. TEMAZEPAM [Suspect]
     Active Substance: TEMAZEPAM
     Dosage: 20 MG
  7. ATOMOXETINE [Suspect]
     Active Substance: ATOMOXETINE
     Dosage: 50 MG MANE
  8. ARIPIPRAZOLE [Suspect]
     Active Substance: ARIPIPRAZOLE
     Dosage: UNK

REACTIONS (15)
  - Electrocardiogram ST segment elevation [Unknown]
  - General physical health deterioration [Unknown]
  - Iron deficiency [Unknown]
  - Haemorrhage [Unknown]
  - Troponin increased [Unknown]
  - Blood creatine phosphokinase increased [Unknown]
  - C-reactive protein increased [Unknown]
  - Mean cell volume decreased [Unknown]
  - Mean cell haemoglobin decreased [Unknown]
  - Orthostatic hypotension [Unknown]
  - Tachycardia [Unknown]
  - Thalassaemia [Unknown]
  - Iron metabolism disorder [Unknown]
  - Contraindicated product administered [Unknown]
  - Sinus tachycardia [Unknown]

NARRATIVE: CASE EVENT DATE: 20220211
